FAERS Safety Report 7549627-9 (Version None)
Quarter: 2011Q2

REPORT INFORMATION
  Report Type: 
  Country: None (occurrence: None)
  Receive Date: 20110615
  Receipt Date: 20110602
  Transmission Date: 20111010
  Serious: Yes (Death, Other)
  Sender: FDA-Public Use
  Company Number: IN-CELGENEUS-078-21880-11060658

PATIENT

DRUGS (4)
  1. DEXAMETHASONE [Concomitant]
     Indication: MULTIPLE MYELOMA
     Route: 048
  2. THALIDOMIDE [Suspect]
     Indication: MULTIPLE MYELOMA
     Dosage: 100/200 MG/D
     Route: 065
  3. ZOLEDRONIC ACID [Concomitant]
     Route: 051
  4. REVLIMID [Suspect]
     Indication: MULTIPLE MYELOMA
     Dosage: 25 MILLIGRAM
     Route: 048

REACTIONS (15)
  - FATIGUE [None]
  - CONSTIPATION [None]
  - TOXICITY TO VARIOUS AGENTS [None]
  - ANAEMIA [None]
  - AUTOIMMUNE THROMBOCYTOPENIA [None]
  - UPPER RESPIRATORY TRACT INFECTION [None]
  - NEUTROPENIA [None]
  - TREMOR [None]
  - PERIPHERAL SENSORY NEUROPATHY [None]
  - SKIN INFECTION [None]
  - THROMBOCYTOPENIA [None]
  - DIZZINESS [None]
  - DISEASE PROGRESSION [None]
  - STEM CELL TRANSPLANT [None]
  - MULTIPLE MYELOMA [None]
